FAERS Safety Report 12743837 (Version 1)
Quarter: 2016Q3

REPORT INFORMATION
  Report Type: Spontaneous
  Country: US (occurrence: US)
  Receive Date: 20160914
  Receipt Date: 20160914
  Transmission Date: 20161109
  Serious: Yes (Hospitalization, Other)
  Sender: FDA-Public Use
  Company Number: US-PFIZER INC-2016426378

PATIENT
  Age: 69 Year
  Sex: Male
  Weight: 91 kg

DRUGS (6)
  1. TIKOSYN [Suspect]
     Active Substance: DOFETILIDE
     Indication: ARRHYTHMIA
     Dosage: 500 TWICE DAILY
     Dates: end: 201609
  2. FUROSEMIDE. [Suspect]
     Active Substance: FUROSEMIDE
     Indication: FLUID RETENTION
     Dosage: 120 MG, DAILY, MINIMUM OF 120MG A DAY
  3. TIKOSYN [Suspect]
     Active Substance: DOFETILIDE
     Dosage: 250 MG TWICE DAILY
     Dates: start: 201609
  4. POTASSIUM [Concomitant]
     Active Substance: POTASSIUM
  5. METOLAZONE. [Suspect]
     Active Substance: METOLAZONE
     Indication: FLUID RETENTION
     Dosage: UNK, AS NEEDED
  6. PRADAXA [Concomitant]
     Active Substance: DABIGATRAN ETEXILATE MESYLATE
     Indication: COAGULOPATHY
     Dosage: UNK

REACTIONS (8)
  - Cardiac arrest [Unknown]
  - Blood potassium decreased [Unknown]
  - Fall [Unknown]
  - Arrhythmia [Not Recovered/Not Resolved]
  - Renal disorder [Unknown]
  - Cardiac failure [Not Recovered/Not Resolved]
  - Condition aggravated [Not Recovered/Not Resolved]
  - Malaise [Unknown]

NARRATIVE: CASE EVENT DATE: 2016
